FAERS Safety Report 5822760-5 (Version None)
Quarter: 2008Q3

REPORT INFORMATION
  Report Type: 
  Country: None (occurrence: None)
  Receive Date: 20080725
  Receipt Date: 20070906
  Transmission Date: 20090109
  Serious: No
  Sender: FDA-Public Use
  Company Number: US-AMGEN-KDL242288

PATIENT
  Sex: Female

DRUGS (9)
  1. PROCRIT [Suspect]
     Indication: HAEMORRHAGE
     Dates: start: 20070701, end: 20070831
  2. NOVOLIN R [Concomitant]
  3. LANTUS [Concomitant]
  4. ZOCOR [Concomitant]
  5. ZOLOFT [Concomitant]
  6. PREVACID [Concomitant]
  7. LISINOPRIL [Concomitant]
  8. IMITREX [Concomitant]
  9. IRON [Concomitant]
     Route: 048

REACTIONS (1)
  - HAEMATOCHEZIA [None]
